FAERS Safety Report 15860119 (Version 1)
Quarter: 2019Q1

REPORT INFORMATION
  Report Type: Report from Study
  Country: CO (occurrence: CO)
  Receive Date: 20190123
  Receipt Date: 20190123
  Transmission Date: 20190417
  Serious: Yes (Death, Hospitalization, Other)
  Sender: FDA-Public Use
  Company Number: CO-TAKEDA-2019TUS001857

PATIENT
  Age: 44 Year
  Sex: Male
  Weight: 75 kg

DRUGS (9)
  1. HYDROXYZINE [Concomitant]
     Active Substance: HYDROXYZINE HYDROCHLORIDE
     Indication: MALAISE
     Dosage: 25 MILLIGRAM, QD
     Route: 048
     Dates: start: 2018, end: 20190102
  2. PONATINIB [Suspect]
     Active Substance: PONATINIB
     Indication: CHRONIC MYELOID LEUKAEMIA
     Dosage: 15 MILLIGRAM, QD
     Route: 048
     Dates: start: 20181003
  3. PONATINIB [Suspect]
     Active Substance: PONATINIB
     Dosage: 30 MILLIGRAM, QD
     Route: 048
  4. PONATINIB [Suspect]
     Active Substance: PONATINIB
     Dosage: 45 MILLIGRAM, QD
     Route: 048
  5. VITAMIN E                          /00110501/ [Concomitant]
     Active Substance: TOCOPHEROL
     Indication: MALAISE
     Dosage: 15 MILLIGRAM, QD
     Route: 048
     Dates: start: 2018, end: 20190102
  6. PIROXICAM. [Concomitant]
     Active Substance: PIROXICAM
     Indication: MALAISE
     Dosage: 20 MILLIGRAM, QD
     Route: 048
     Dates: start: 2018, end: 20190102
  7. ACYCLOVIR                          /00587301/ [Concomitant]
     Active Substance: ACYCLOVIR
     Indication: MALAISE
     Dosage: 200 MILLIGRAM, QD
     Route: 048
     Dates: start: 2018, end: 20190102
  8. HYDROCORTISONE. [Concomitant]
     Active Substance: HYDROCORTISONE
     Indication: MALAISE
     Dosage: 100 MILLIGRAM, QD
     Route: 048
     Dates: start: 2018, end: 20190102
  9. BISACODYL. [Concomitant]
     Active Substance: BISACODYL
     Indication: MALAISE
     Dosage: 5 MILLIGRAM, QD
     Route: 048
     Dates: start: 2018, end: 20190102

REACTIONS (2)
  - Chronic myeloid leukaemia recurrent [Fatal]
  - Thrombocytopenia [Unknown]

NARRATIVE: CASE EVENT DATE: 20181023
